FAERS Safety Report 15488604 (Version 1)
Quarter: 2018Q4

REPORT INFORMATION
  Report Type: Spontaneous
  Country: US (occurrence: US)
  Receive Date: 20181011
  Receipt Date: 20181011
  Transmission Date: 20190205
  Serious: No
  Sender: FDA-Public Use
  Company Number: US-ELI_LILLY_AND_COMPANY-US201810003418

PATIENT
  Sex: Female

DRUGS (1)
  1. TALTZ [Suspect]
     Active Substance: IXEKIZUMAB
     Indication: PSORIASIS
     Dosage: UNK, 2/M
     Route: 065
     Dates: start: 20180416

REACTIONS (3)
  - Injection site erythema [Recovered/Resolved]
  - Papule [Recovering/Resolving]
  - Extra dose administered [Unknown]
